FAERS Safety Report 7356451-9 (Version None)
Quarter: 2011Q1

REPORT INFORMATION
  Report Type: 
  Country: None (occurrence: None)
  Receive Date: 20110316
  Receipt Date: 20110309
  Transmission Date: 20110831
  Serious: Yes (Other)
  Sender: FDA-Public Use
  Company Number: US-US-EMD SERONO, INC.-7046503

PATIENT
  Sex: Female

DRUGS (1)
  1. REBIF [Suspect]
     Indication: MULTIPLE SCLEROSIS
     Route: 058
     Dates: start: 20091124

REACTIONS (5)
  - SELF-INJURIOUS IDEATION [None]
  - DEPRESSED MOOD [None]
  - BLADDER CATHETERISATION [None]
  - FAECAL INCONTINENCE [None]
  - MULTIPLE SCLEROSIS [None]
